FAERS Safety Report 24856932 (Version 1)
Quarter: 2025Q1

REPORT INFORMATION
  Report Type: Spontaneous
  Country: US (occurrence: US)
  Receive Date: 20250117
  Receipt Date: 20250117
  Transmission Date: 20250409
  Serious: Yes (Other)
  Sender: STRIDES
  Company Number: US-STRIDES ARCOLAB LIMITED-2025SP000552

PATIENT

DRUGS (3)
  1. MYCOPHENOLATE MOFETIL [Suspect]
     Active Substance: MYCOPHENOLATE MOFETIL
     Indication: Prophylaxis against transplant rejection
     Route: 065
  2. PREDNISOLONE [Suspect]
     Active Substance: PREDNISOLONE
     Indication: Prophylaxis against transplant rejection
     Route: 065
  3. SIROLIMUS [Suspect]
     Active Substance: SIROLIMUS
     Indication: Prophylaxis against transplant rejection
     Route: 065

REACTIONS (8)
  - Cachexia [Recovered/Resolved]
  - Inflammatory bowel disease [Recovered/Resolved]
  - Epstein-Barr viraemia [Recovered/Resolved]
  - Cytomegalovirus colitis [Recovered/Resolved]
  - Toxicity to various agents [Recovered/Resolved]
  - Gastrooesophageal reflux disease [Recovered/Resolved]
  - Malnutrition [Recovered/Resolved]
  - Helicobacter infection [Recovered/Resolved]
